FAERS Safety Report 7997334-0 (Version None)
Quarter: 2011Q4

REPORT INFORMATION
  Report Type: 
  Country: None (occurrence: None)
  Receive Date: 20111221
  Receipt Date: 20111213
  Transmission Date: 20120403
  Serious: Yes (Death)
  Sender: FDA-Public Use
  Company Number: MX-UCBSA-047593

PATIENT
  Age: 69 Year
  Sex: Male
  Weight: 72 kg

DRUGS (3)
  1. ENALAPRIL MALEATE [Concomitant]
     Indication: HYPERTENSION
     Route: 048
     Dates: start: 20070101
  2. NUBRENZA [Suspect]
     Indication: PARKINSON'S DISEASE
     Route: 062
     Dates: start: 20110407, end: 20110509
  3. OXYGEN [Concomitant]
     Indication: CHRONIC OBSTRUCTIVE PULMONARY DISEASE
     Dosage: PRN (AS NECESSARY)
     Route: 045
     Dates: start: 20080101

REACTIONS (3)
  - CARDIAC ARREST [None]
  - GLUCOSE TOLERANCE IMPAIRED [None]
  - SOMNOLENCE [None]
